FAERS Safety Report 7224832-X (Version None)
Quarter: 2011Q1

REPORT INFORMATION
  Report Type: 
  Country: None (occurrence: None)
  Receive Date: 20110113
  Receipt Date: 20110106
  Transmission Date: 20110831
  Serious: Yes (Hospitalization, Other)
  Sender: FDA-Public Use
  Company Number: BR-ELI_LILLY_AND_COMPANY-BR201012005445

PATIENT
  Sex: Female
  Weight: 66 kg

DRUGS (8)
  1. HUMULIN N [Suspect]
     Dosage: 16 IU, EACH EVENING
     Route: 058
  2. VIVACOR [Concomitant]
     Indication: BLOOD CHOLESTEROL
     Dosage: 20 MG, EACH EVENING
     Route: 048
  3. ENALAPRIL [Concomitant]
     Indication: HYPERTENSION
     Dosage: UNK, UNKNOWN
     Route: 048
  4. PURAN T4 [Concomitant]
     Indication: THYROID DISORDER
     Dosage: 75 MG, EACH MORNING
     Route: 048
     Dates: start: 19900101
  5. ATENSINA [Concomitant]
     Indication: HYPERTENSION
     Dosage: 0.1 MG, 3/D
     Route: 048
     Dates: start: 20100101
  6. HUMULIN N [Suspect]
     Indication: TYPE 2 DIABETES MELLITUS
     Dosage: 40 IU, EACH MORNING
     Route: 058
  7. AMLODIPINE BESYLATE [Concomitant]
     Indication: HYPERTENSION
     Dosage: 1 MG, 3/D
     Route: 048
  8. DIOVAN [Concomitant]
     Indication: HYPERTENSION
     Dosage: UNK, UNKNOWN
     Route: 048

REACTIONS (7)
  - ARTERIAL OCCLUSIVE DISEASE [None]
  - BLOOD CREATINE INCREASED [None]
  - INJECTION SITE HAEMATOMA [None]
  - FEELING ABNORMAL [None]
  - RENAL DISORDER [None]
  - RENAL IMPAIRMENT [None]
  - INJECTION SITE HAEMORRHAGE [None]
